FAERS Safety Report 21339438 (Version 1)
Quarter: 2022Q3

REPORT INFORMATION
  Report Type: Spontaneous
  Country: US (occurrence: US)
  Receive Date: 20220915
  Receipt Date: 20220915
  Transmission Date: 20221026
  Serious: No
  Sender: FDA-Public Use
  Company Number: US-SANOFI-01268888

PATIENT
  Age: 81 Year
  Sex: Female

DRUGS (2)
  1. LANTUS SOLOSTAR [Suspect]
     Active Substance: INSULIN GLARGINE
     Indication: Type 2 diabetes mellitus
     Dosage: 40 UNITS BID AND DRUG TREATMENT DURATION:180 UNITS LEFT
  2. INSULIN NOS [Concomitant]
     Active Substance: INSULIN NOS
     Dosage: 10 U

REACTIONS (1)
  - Inappropriate schedule of product administration [Unknown]
